FAERS Safety Report 21016480 (Version 8)
Quarter: 2025Q2

REPORT INFORMATION
  Report Type: Report from Study
  Country: KR (occurrence: KR)
  Receive Date: 20220628
  Receipt Date: 20250602
  Transmission Date: 20250716
  Serious: Yes (Hospitalization)
  Sender: NOVARTIS
  Company Number: KR-NOVARTISPH-NVSC2022KR146780

PATIENT
  Age: 48 Year
  Sex: Female
  Weight: 50 kg

DRUGS (14)
  1. KISQALI [Suspect]
     Active Substance: RIBOCICLIB SUCCINATE
     Indication: Hormone receptor positive HER2 negative breast cancer
     Dosage: 600 MG, QD
     Route: 048
     Dates: start: 20220405, end: 20220419
  2. KISQALI [Suspect]
     Active Substance: RIBOCICLIB SUCCINATE
     Dosage: 600 MG, QD
     Route: 048
     Dates: start: 20220503, end: 20220523
  3. KISQALI [Suspect]
     Active Substance: RIBOCICLIB SUCCINATE
     Dosage: 600 MG, QD
     Route: 048
     Dates: start: 20220608, end: 20220608
  4. TRAMADOL HCL [Concomitant]
     Active Substance: TRAMADOL HYDROCHLORIDE
     Indication: Product used for unknown indication
     Route: 065
     Dates: start: 20220405, end: 20220426
  5. GOSERELIN [Concomitant]
     Active Substance: GOSERELIN
     Indication: Breast cancer
     Dosage: 3.78 MG, QD (DEPOT)
     Route: 058
     Dates: start: 20200128, end: 20220607
  6. FEMARA [Concomitant]
     Active Substance: LETROZOLE
     Indication: Breast cancer
     Dosage: 2.5 MG, QD
     Route: 048
     Dates: start: 20220405
  7. KETOROLAC TROMETHAMINE [Concomitant]
     Active Substance: KETOROLAC TROMETHAMINE
     Indication: Product used for unknown indication
     Route: 065
     Dates: start: 20220405, end: 20220424
  8. OXYCODONE HYDROCHLORIDE [Concomitant]
     Active Substance: OXYCODONE HYDROCHLORIDE
     Indication: Product used for unknown indication
     Route: 065
     Dates: start: 20220405, end: 20220504
  9. CEFTRIAXONE [Concomitant]
     Active Substance: CEFTRIAXONE
     Indication: Product used for unknown indication
     Route: 065
     Dates: start: 20220405, end: 20220426
  10. Recomid [Concomitant]
     Indication: Gastric cancer
     Dosage: 100 MG, QD
     Route: 048
     Dates: start: 20200317
  11. Gel 2 [Concomitant]
     Indication: Gastric cancer
     Dosage: 4.5 G, QD
     Route: 048
     Dates: start: 20220408
  12. PROBIOTICS NOS [Concomitant]
     Active Substance: PROBIOTICS NOS
     Indication: Gastric cancer
     Dosage: 2 DOSAGE FORM, QD
     Route: 048
     Dates: start: 20200317
  13. Treno [Concomitant]
     Indication: Keloid scar
     Dosage: 300 MG, QD
     Route: 048
     Dates: start: 20220315
  14. Tamceton [Concomitant]
     Indication: Keloid scar
     Dosage: 40 MG, QD
     Route: 030
     Dates: start: 20220412, end: 20220412

REACTIONS (9)
  - Flank pain [Recovered/Resolved with Sequelae]
  - Constipation [Recovered/Resolved]
  - Myalgia [Not Recovered/Not Resolved]
  - Neutrophil count decreased [Recovered/Resolved]
  - Pleural effusion [Not Recovered/Not Resolved]
  - Condition aggravated [Not Recovered/Not Resolved]
  - Abdominal pain lower [Recovered/Resolved]
  - Cough [Recovered/Resolved]
  - Asthenia [Not Recovered/Not Resolved]

NARRATIVE: CASE EVENT DATE: 20220419
